FAERS Safety Report 25795220 (Version 1)
Quarter: 2025Q3

REPORT INFORMATION
  Report Type: Spontaneous
  Country: US (occurrence: US)
  Receive Date: 20250912
  Receipt Date: 20250912
  Transmission Date: 20251021
  Serious: No
  Sender: DBL GROUP
  Company Number: US-DBL Pharmaceuticals, Inc.-2184393

PATIENT

DRUGS (3)
  1. METHOCARBAMOL [Suspect]
     Active Substance: METHOCARBAMOL
     Indication: Fibromyalgia
  2. ALEVE [Suspect]
     Active Substance: NAPROXEN SODIUM
  3. GABAPENTIN [Suspect]
     Active Substance: GABAPENTIN

REACTIONS (1)
  - Insomnia [Unknown]
